FAERS Safety Report 8352901-X (Version None)
Quarter: 2012Q2

REPORT INFORMATION
  Report Type: 
  Country: None (occurrence: None)
  Receive Date: 20120511
  Receipt Date: 20120504
  Transmission Date: 20120825
  Serious: Yes (Other)
  Sender: FDA-Public Use
  Company Number: US-SHIONOGI, INC-2011000152

PATIENT
  Sex: Male

DRUGS (3)
  1. FOCALIN [Concomitant]
     Dosage: 15 MG, EVERY MORNING
     Dates: start: 20110101
  2. CLONIDINE [Concomitant]
     Dosage: 0.1 MG, EVERY NIGHT, AT BEDTIME
     Dates: start: 20100101
  3. KAPVAY [Suspect]
     Indication: ATTENTION DEFICIT/HYPERACTIVITY DISORDER
     Dosage: 0.1 MG, BID
     Route: 065
     Dates: start: 20110701, end: 20110101

REACTIONS (7)
  - PSYCHOTIC BEHAVIOUR [None]
  - DECREASED EYE CONTACT [None]
  - SOCIAL AVOIDANT BEHAVIOUR [None]
  - ABNORMAL BEHAVIOUR [None]
  - ATTENTION DEFICIT/HYPERACTIVITY DISORDER [None]
  - DYSARTHRIA [None]
  - SLEEP TERROR [None]
